FAERS Safety Report 4758638-8 (Version None)
Quarter: 2005Q3

REPORT INFORMATION
  Report Type: 
  Country: None (occurrence: None)
  Receive Date: 20050901
  Receipt Date: 20050722
  Transmission Date: 20060218
  Serious: Yes (Death)
  Sender: FDA-Public Use
  Company Number: IT-AMGEN-UK143660

PATIENT
  Age: 60 Year
  Sex: Male

DRUGS (1)
  1. NEUPOGEN [Suspect]
     Indication: PRE-EXISTING DISEASE
     Route: 058

REACTIONS (2)
  - DEATH [None]
  - LEUKOCYTOSIS [None]
